FAERS Safety Report 10009683 (Version 2)
Quarter: 2014Q1

REPORT INFORMATION
  Report Type: Spontaneous
  Country: US (occurrence: US)
  Receive Date: 20140312
  Receipt Date: 20140312
  Transmission Date: 20141002
  Serious: No
  Sender: FDA-Public Use
  Company Number: US-INCYTE CORPORATION-2012IN001734

PATIENT
  Age: 65 Year
  Sex: Male

DRUGS (5)
  1. JAKAFI [Suspect]
     Indication: MYELOFIBROSIS
     Dosage: 20 MG, BID
     Route: 048
     Dates: start: 201202, end: 2012
  2. JAKAFI [Suspect]
     Dosage: 10 MG, BID
     Route: 048
     Dates: start: 2012, end: 2012
  3. JAKAFI [Suspect]
     Dosage: 20 MG, BID
     Route: 048
     Dates: start: 201208, end: 201209
  4. BACLOFEN [Concomitant]
  5. PEPCID [Concomitant]

REACTIONS (3)
  - Splenomegaly [Unknown]
  - Drug effect decreased [Unknown]
  - Treatment failure [Unknown]
